FAERS Safety Report 16970424 (Version 1)
Quarter: 2019Q4

REPORT INFORMATION
  Report Type: Spontaneous
  Country: FR (occurrence: FR)
  Receive Date: 20191029
  Receipt Date: 20191029
  Transmission Date: 20200122
  Serious: Yes (Life-Threatening)
  Sender: FDA-Public Use
  Company Number: FR-PFIZER INC-2019464343

PATIENT
  Age: 31 Year
  Sex: Female
  Weight: 60 kg

DRUGS (3)
  1. ATRACURIUM BESILATE [Suspect]
     Active Substance: ATRACURIUM BESYLATE
     Indication: ANAESTHESIA
     Dosage: UNK
     Route: 041
     Dates: start: 20190904, end: 20190904
  2. BLEU PATENTE V [Suspect]
     Active Substance: PATENT BLUE V
     Indication: MASTECTOMY
     Dosage: UNK
     Route: 041
     Dates: start: 20190904, end: 20190904
  3. KETAMINE [Suspect]
     Active Substance: KETAMINE
     Indication: ANAESTHESIA
     Dosage: UNK
     Route: 041
     Dates: start: 20190904, end: 20190904

REACTIONS (3)
  - Anaphylactic shock [Recovered/Resolved]
  - Rash [Recovered/Resolved]
  - Stress cardiomyopathy [Recovering/Resolving]

NARRATIVE: CASE EVENT DATE: 20190904
